FAERS Safety Report 5392062-2 (Version None)
Quarter: 2007Q3

REPORT INFORMATION
  Report Type: 
  Country: None (occurrence: None)
  Receive Date: 20070718
  Receipt Date: 20070718
  Transmission Date: 20080115
  Serious: Yes (Hospitalization)
  Sender: FDA-Public Use
  Company Number: None

PATIENT
  Sex: Female
  Weight: 73.3 kg

DRUGS (8)
  1. CARBOPLATIN [Suspect]
     Indication: BREAST CANCER METASTATIC
     Dosage: 2 AUC WEEKLY 1X IV
     Route: 042
  2. CETUXIMAB [Suspect]
     Indication: BREAST CANCER METASTATIC
     Dosage: 400MG/M2 WEEKLY - 1X IV
     Route: 042
  3. CITALOPRAM [Concomitant]
  4. ENOXAPARIN SODIUM [Concomitant]
  5. HYDROCHLOROTHIAZIDE [Concomitant]
  6. PERCOCET [Concomitant]
  7. NEXIUM [Concomitant]
  8. ZYRTEC [Concomitant]

REACTIONS (1)
  - NO ADVERSE DRUG REACTION [None]
